FAERS Safety Report 22371943 (Version 1)
Quarter: 2023Q2

REPORT INFORMATION
  Report Type: Spontaneous
  Country: PL (occurrence: PL)
  Receive Date: 20230526
  Receipt Date: 20230526
  Transmission Date: 20230722
  Serious: Yes (Hospitalization)
  Sender: FDA-Public Use
  Company Number: PL-MYLANLABS-2023M1054503

PATIENT
  Age: 38 Year
  Sex: Male

DRUGS (6)
  1. EVEROLIMUS [Suspect]
     Active Substance: EVEROLIMUS
     Indication: Gastrinoma
     Dosage: 10 MILLIGRAM, QD
     Route: 048
     Dates: start: 202102
  2. EVEROLIMUS [Suspect]
     Active Substance: EVEROLIMUS
     Indication: Pancreatic neuroendocrine tumour metastatic
  3. OCTREOTIDE [Suspect]
     Active Substance: OCTREOTIDE
     Indication: Gastrinoma
     Dosage: 30 MILLIGRAM, Q28D
     Route: 065
     Dates: start: 202102
  4. OCTREOTIDE [Suspect]
     Active Substance: OCTREOTIDE
     Indication: Pancreatic neuroendocrine tumour metastatic
  5. FAMOTIDINE [Suspect]
     Active Substance: FAMOTIDINE
     Indication: Gastrinoma
     Dosage: UNK
     Route: 065
     Dates: start: 2021
  6. FAMOTIDINE [Suspect]
     Active Substance: FAMOTIDINE
     Indication: Pancreatic neuroendocrine tumour metastatic

REACTIONS (3)
  - Interstitial lung disease [Unknown]
  - Drug ineffective [Unknown]
  - Disease progression [Unknown]
